FAERS Safety Report 5253843-9 (Version None)
Quarter: 2007Q1

REPORT INFORMATION
  Report Type: 
  Country: None (occurrence: None)
  Receive Date: 20070227
  Receipt Date: 20070216
  Transmission Date: 20070707
  Serious: Yes (Other)
  Sender: FDA-Public Use
  Company Number: 236267

PATIENT
  Age: 74 Year
  Sex: Male
  Weight: 79.4 kg

DRUGS (7)
  1. LUCENTIS [Suspect]
     Indication: MACULAR DEGENERATION
     Dosage: 0.05, INTRAVITREAL
     Dates: start: 20070118
  2. AVASTIN [Suspect]
     Indication: MACULAR DEGENERATION
     Dosage: INTRAVITREAL
     Dates: start: 20061012, end: 20061221
  3. MICARDIS [Concomitant]
  4. CARTIA (ASPIRIN) (ASPIRIN) [Concomitant]
  5. FLOMAX [Concomitant]
  6. PRAVACHOL [Concomitant]
  7. TRICOR [Concomitant]

REACTIONS (2)
  - ARTHRITIS [None]
  - DEEP VEIN THROMBOSIS [None]
